FAERS Safety Report 6185309-6 (Version None)
Quarter: 2009Q2

REPORT INFORMATION
  Report Type: 
  Country: None (occurrence: None)
  Receive Date: 20090511
  Receipt Date: 20090427
  Transmission Date: 20091009
  Serious: Yes (Hospitalization)
  Sender: FDA-Public Use
  Company Number: ES-ROCHE-630152

PATIENT
  Age: 21 Year
  Sex: Male

DRUGS (4)
  1. KYTRIL [Suspect]
     Indication: PREMEDICATION
     Route: 042
     Dates: start: 20090312, end: 20090312
  2. METHOTREXATE [Suspect]
     Indication: BONE SARCOMA
     Route: 042
     Dates: start: 20090312, end: 20090312
  3. DEXAMETHASONE [Suspect]
     Indication: PREMEDICATION
     Route: 042
     Dates: start: 20090312, end: 20090312
  4. ACETAMINOPHEN [Suspect]
     Indication: DRUG USE FOR UNKNOWN INDICATION
     Route: 065
     Dates: start: 20090314

REACTIONS (2)
  - HYPERTRANSAMINASAEMIA [None]
  - MUCOSAL INFLAMMATION [None]
